FAERS Safety Report 4902401-1 (Version None)
Quarter: 2006Q1

REPORT INFORMATION
  Report Type: 
  Country: None (occurrence: None)
  Receive Date: 20060202
  Receipt Date: 20060202
  Transmission Date: 20060701
  Serious: Yes (Hospitalization)
  Sender: FDA-Public Use
  Company Number: None

PATIENT
  Sex: Male
  Weight: 112 kg

DRUGS (4)
  1. BUSULFAN [Suspect]
     Indication: ACUTE MYELOID LEUKAEMIA
     Dosage: 544 MG
     Dates: start: 20041114, end: 20041116
  2. FLUDARABINE PHOSPHATE [Suspect]
     Dosage: 300 MG
     Dates: start: 20041111, end: 20041115
  3. G-CSF (FILGRASTIM, AMGEN) [Suspect]
     Dosage: 3360 MCG
     Dates: start: 20041125, end: 20041201
  4. METHOTREXATE [Suspect]
     Dosage: 30 MG
     Dates: start: 20041119, end: 20041124

REACTIONS (4)
  - CRYPTOGENIC ORGANIZING PNEUMONIA [None]
  - FATIGUE [None]
  - PULMONARY EMBOLISM [None]
  - VENOUS THROMBOSIS [None]
